FAERS Safety Report 7371439-X (Version None)
Quarter: 2011Q1

REPORT INFORMATION
  Report Type: 
  Country: None (occurrence: None)
  Receive Date: 20110322
  Receipt Date: 20110322
  Transmission Date: 20110831
  Serious: Yes (Life-Threatening, Hospitalization, Disabling)
  Sender: FDA-Public Use
  Company Number: None

PATIENT
  Age: 75 Year
  Sex: Male
  Weight: 63.5036 kg

DRUGS (4)
  1. LIPITOR [Concomitant]
  2. HYDROCHLOROTHIAZIDE [Concomitant]
  3. METPROLOL  BETA BLOCKER [Concomitant]
  4. FOSAMAX [Suspect]
     Indication: OSTEOPENIA
     Dosage: 1 TABLET ONCE A WEEK PO
     Route: 048
     Dates: start: 20020328, end: 20060317

REACTIONS (3)
  - FALL [None]
  - FEMUR FRACTURE [None]
  - BONE DISORDER [None]
